FAERS Safety Report 7350154-2 (Version None)
Quarter: 2011Q1

REPORT INFORMATION
  Report Type: 
  Country: None (occurrence: None)
  Receive Date: 20110314
  Receipt Date: 20110201
  Transmission Date: 20110831
  Serious: Yes (Hospitalization)
  Sender: FDA-Public Use
  Company Number: B0698493A

PATIENT
  Age: 69 Year
  Sex: Female

DRUGS (10)
  1. ZOMETA [Concomitant]
     Indication: OSTEOPOROSIS
     Dates: start: 20091006
  2. PREDNISONE TAB [Suspect]
     Indication: MULTIPLE MYELOMA
     Dates: start: 20101109
  3. AMLODIPINE [Concomitant]
     Indication: HYPERTENSION
     Dosage: 5MG PER DAY
     Route: 048
     Dates: start: 20091106
  4. BLOPRESS [Concomitant]
     Indication: HYPERTENSION
     Dosage: 16MG PER DAY
     Route: 048
     Dates: start: 20100922
  5. MELPHALAN [Suspect]
     Indication: MULTIPLE MYELOMA
     Dosage: 8MG PER DAY
     Dates: start: 20101109
  6. MAGNESIUM [Concomitant]
     Dosage: 350MG PER DAY
     Dates: start: 20090701
  7. ASPIRIN [Concomitant]
     Indication: THROMBOSIS
     Dosage: 100MG PER DAY
     Route: 048
     Dates: start: 20040101
  8. THALIDOMIDE [Suspect]
     Indication: MULTIPLE MYELOMA
     Route: 048
     Dates: start: 20101109
  9. BISOPROLOL FUMARATE [Concomitant]
     Indication: HYPERTENSION
     Dosage: 5MG PER DAY
     Dates: start: 20100922
  10. METOCLOPRAMIDE HCL [Concomitant]
     Indication: NAUSEA
     Route: 048
     Dates: start: 20091106

REACTIONS (1)
  - FEBRILE NEUTROPENIA [None]
